FAERS Safety Report 18155712 (Version 1)
Quarter: 2020Q3

REPORT INFORMATION
  Report Type: Other
  Country: US (occurrence: US)
  Receive Date: 20200817
  Receipt Date: 20200817
  Transmission Date: 20201103
  Serious: Yes (Other)
  Sender: FDA-Public Use
  Company Number: US-ROCHE-2658568

PATIENT
  Sex: Male

DRUGS (1)
  1. PULMOZYME [Suspect]
     Active Substance: DORNASE ALFA
     Indication: DEPENDENCE ON RESPIRATOR
     Dosage: NEBULIZE THE CONTENTS OF 1 VIAL(S) TWICE A DAY
     Route: 065

REACTIONS (5)
  - Accident [Unknown]
  - Lower limb fracture [Unknown]
  - Intentional product use issue [Unknown]
  - Tooth abscess [Unknown]
  - Off label use [Unknown]
